FAERS Safety Report 8812294 (Version 1)
Quarter: 2012Q4

REPORT INFORMATION
  Report Type: 
  Country: US (occurrence: US)
  Receive Date: 20120927
  Receipt Date: 20120927
  Transmission Date: 20130627
  Serious: Yes (Death)
  Sender: FDA-Public Use
  Company Number: US-ROCHE-1103649

PATIENT
  Sex: Male

DRUGS (4)
  1. AVASTIN [Suspect]
     Indication: PANCREATIC CARCINOMA
     Route: 065
     Dates: start: 20050308, end: 20050614
  2. XELODA [Suspect]
     Indication: PRODUCT USED FOR UNKNOWN INDICATION
     Route: 065
     Dates: start: 20050308
  3. GEMZAR [Concomitant]
  4. TAXOTERE [Concomitant]
     Route: 065
     Dates: start: 20050301

REACTIONS (2)
  - Death [Fatal]
  - Disease progression [Unknown]
